FAERS Safety Report 17443347 (Version 1)
Quarter: 2020Q1

REPORT INFORMATION
  Report Type: Spontaneous
  Country: CA (occurrence: CA)
  Receive Date: 20200221
  Receipt Date: 20200221
  Transmission Date: 20200409
  Serious: Yes (Other)
  Sender: FDA-Public Use
  Company Number: CA-009507513-2002CAN007649

PATIENT
  Age: 41 Year
  Sex: Female

DRUGS (6)
  1. PULMICORT TURBUHALER [Concomitant]
     Active Substance: BUDESONIDE
     Dosage: DOSAGE FORM: NOT SPECIFIED
     Route: 065
  2. BENADRYL [Concomitant]
     Active Substance: DIPHENHYDRAMINE HYDROCHLORIDE
     Dosage: DOSAGE FORM: NOT SPECIFIED
     Route: 065
  3. SINGULAIR [Suspect]
     Active Substance: MONTELUKAST SODIUM
     Indication: PRODUCT USED FOR UNKNOWN INDICATION
     Dosage: 1 DOSAGE FORM, 1 EVERY 1 DAY; DOSAGE FORM: NOT SPECIFIED
     Route: 065
  4. ELOCOM [Concomitant]
     Active Substance: MOMETASONE FUROATE
     Dosage: DOSAGE FORM: NOT SPECIFIED
     Route: 065
  5. XOLAIR [Suspect]
     Active Substance: OMALIZUMAB
     Indication: CHRONIC SPONTANEOUS URTICARIA
     Dosage: 300 MILLIGRAM, UNK; DOSAGE FORM: NOT SPECIFIED
     Route: 058
  6. REACTINE [Concomitant]
     Dosage: DOSAGE FORM: NOT SPECIFIED
     Route: 065

REACTIONS (7)
  - Cough [Recovered/Resolved]
  - Rhinorrhoea [Recovered/Resolved]
  - Nasal congestion [Recovered/Resolved]
  - Sinusitis [Recovered/Resolved]
  - Asthma [Recovered/Resolved]
  - Nasal polyps [Recovered/Resolved]
  - Wheezing [Recovered/Resolved]
